FAERS Safety Report 10794466 (Version 1)
Quarter: 2015Q1

REPORT INFORMATION
  Report Type: Spontaneous
  Country: JP (occurrence: JP)
  Receive Date: 20150213
  Receipt Date: 20150213
  Transmission Date: 20150721
  Serious: Yes (Hospitalization)
  Sender: FDA-Public Use
  Company Number: JP-IMPAX LABORATORIES, INC-2015-IPXL-00113

PATIENT
  Age: 47 Year
  Sex: Male

DRUGS (40)
  1. CARBIDOPA-LEVODOPA ER [Suspect]
     Active Substance: CARBIDOPA\LEVODOPA
     Dosage: 300 MG, DAILY
     Route: 065
  2. ROPINIROLE. [Suspect]
     Active Substance: ROPINIROLE
     Dosage: 12 MG, DAILY
     Route: 065
  3. QUETIAPINE [Concomitant]
     Active Substance: QUETIAPINE
     Dosage: 150 MG, DAILY
     Route: 065
  4. CARBIDOPA-LEVODOPA ER [Suspect]
     Active Substance: CARBIDOPA\LEVODOPA
     Dosage: 800 MG, DAILY
     Route: 065
  5. ROPINIROLE. [Suspect]
     Active Substance: ROPINIROLE
     Dosage: 6 MG, DAILY
     Route: 065
  6. TRIHEXYPHENIDYL [Concomitant]
     Active Substance: TRIHEXYPHENIDYL
     Dosage: 3 MG, DAILY
     Route: 065
  7. TRIHEXYPHENIDYL [Concomitant]
     Active Substance: TRIHEXYPHENIDYL
     Dosage: 6 MG, DAILY
     Route: 065
  8. QUETIAPINE [Concomitant]
     Active Substance: QUETIAPINE
     Indication: PARKINSON^S DISEASE
     Dosage: 200 MG, DAILY
     Route: 065
  9. QUETIAPINE [Concomitant]
     Active Substance: QUETIAPINE
     Dosage: 100 MG, DAILY
     Route: 065
  10. BIPERIDEN [Concomitant]
     Active Substance: BIPERIDEN
     Indication: PARKINSON^S DISEASE
     Dosage: 5 MG, DAILY
     Route: 065
  11. ROPINIROLE. [Suspect]
     Active Substance: ROPINIROLE
     Indication: PARKINSON^S DISEASE
     Dosage: 2 MG, DAILY
     Route: 065
  12. OLANZAPINE. [Concomitant]
     Active Substance: OLANZAPINE
     Dosage: 20 MG, DAILY
     Route: 065
  13. CARBIDOPA-LEVODOPA ER [Suspect]
     Active Substance: CARBIDOPA\LEVODOPA
     Dosage: 300 MG, DAILY
     Route: 065
  14. FLUPHENAZINE [Concomitant]
     Active Substance: FLUPHENAZINE
     Indication: PARKINSON^S DISEASE
     Dosage: 12.5 MG, 1 /MONTH
     Route: 030
  15. CARBIDOPA-LEVODOPA ER [Suspect]
     Active Substance: CARBIDOPA\LEVODOPA
     Dosage: 600 MG, DAILY
     Route: 065
  16. CARBIDOPA-LEVODOPA ER [Suspect]
     Active Substance: CARBIDOPA\LEVODOPA
     Dosage: 400 MG, DAILY
     Route: 065
  17. ROPINIROLE. [Suspect]
     Active Substance: ROPINIROLE
     Dosage: 9 MG, DAILY
     Route: 065
  18. PERGOLIDE [Suspect]
     Active Substance: PERGOLIDE
     Indication: PARKINSON^S DISEASE
     Dosage: 0.5 MG, DAILY
     Route: 065
  19. ZONISAMIDE. [Concomitant]
     Active Substance: ZONISAMIDE
     Indication: PARKINSON^S DISEASE
     Dosage: 25 MG, DAILY
     Route: 065
  20. TRIHEXYPHENIDYL [Concomitant]
     Active Substance: TRIHEXYPHENIDYL
     Dosage: 8 MG, DAILY
     Route: 065
  21. QUETIAPINE [Concomitant]
     Active Substance: QUETIAPINE
     Dosage: 600 MG, DAILY
     Route: 065
  22. CARBIDOPA-LEVODOPA ER [Suspect]
     Active Substance: CARBIDOPA\LEVODOPA
     Indication: PARKINSON^S DISEASE
     Dosage: 400 MG, DAILY
     Route: 065
  23. CARBIDOPA-LEVODOPA ER [Suspect]
     Active Substance: CARBIDOPA\LEVODOPA
     Dosage: 300 MG, DAILY
     Route: 065
  24. CARBIDOPA-LEVODOPA ER [Suspect]
     Active Substance: CARBIDOPA\LEVODOPA
     Dosage: 600 MG, DAILY
     Route: 065
  25. BROMOCRIPTINE [Suspect]
     Active Substance: BROMOCRIPTINE
     Indication: PARKINSON^S DISEASE
     Dosage: 10 MG, DAILY
     Route: 065
  26. LITHIUM [Concomitant]
     Active Substance: LITHIUM CARBONATE
     Indication: PARKINSON^S DISEASE
     Dosage: 800 MG, DAILY
     Route: 065
  27. CARBIDOPA-LEVODOPA ER [Suspect]
     Active Substance: CARBIDOPA\LEVODOPA
     Dosage: 150 MG, DAILY
     Route: 065
  28. CARBIDOPA-LEVODOPA ER [Suspect]
     Active Substance: CARBIDOPA\LEVODOPA
     Dosage: 600 MG, DAILY
     Route: 065
  29. ROPINIROLE. [Suspect]
     Active Substance: ROPINIROLE
     Dosage: 4 MG, DAILY
     Route: 065
  30. PRAMIPEXOLE [Suspect]
     Active Substance: PRAMIPEXOLE
     Dosage: 4 MG, DAILY
     Route: 065
  31. TRIHEXYPHENIDYL [Concomitant]
     Active Substance: TRIHEXYPHENIDYL
     Indication: PARKINSON^S DISEASE
     Dosage: 4 MG, DAILY
     Route: 065
  32. OLANZAPINE. [Concomitant]
     Active Substance: OLANZAPINE
     Indication: PARKINSON^S DISEASE
     Dosage: 10 MG, DAILY
     Route: 065
  33. QUETIAPINE [Concomitant]
     Active Substance: QUETIAPINE
     Dosage: 300 MG, DAILY
     Route: 065
  34. QUETIAPINE [Concomitant]
     Active Substance: QUETIAPINE
     Dosage: 400 MG, DAILY
     Route: 065
  35. TIMIPERONE [Concomitant]
     Active Substance: TIMIPERONE
     Indication: PARKINSON^S DISEASE
     Dosage: 12 MG, DAILY
     Route: 042
  36. CARBIDOPA-LEVODOPA ER [Suspect]
     Active Substance: CARBIDOPA\LEVODOPA
     Dosage: 300 MG, DAILY
     Route: 065
  37. CARBIDOPA-LEVODOPA ER [Suspect]
     Active Substance: CARBIDOPA\LEVODOPA
     Dosage: 350 MG, DAILY
     Route: 065
  38. CABERGOLINE. [Suspect]
     Active Substance: CABERGOLINE
     Indication: PARKINSON^S DISEASE
     Dosage: 0.25 MG, DAILY
     Route: 065
  39. ROPINIROLE. [Suspect]
     Active Substance: ROPINIROLE
     Dosage: 6 MG, DAILY
     Route: 065
  40. PRAMIPEXOLE [Suspect]
     Active Substance: PRAMIPEXOLE
     Indication: PARKINSON^S DISEASE
     Dosage: 1.5 MG, DAILY
     Route: 065

REACTIONS (7)
  - Restlessness [Recovering/Resolving]
  - Gait disturbance [Recovering/Resolving]
  - Emotional disorder [Recovering/Resolving]
  - On and off phenomenon [Recovering/Resolving]
  - Hallucinations, mixed [Recovering/Resolving]
  - Pathological gambling [Recovering/Resolving]
  - Delusion [Recovering/Resolving]
